FAERS Safety Report 25300703 (Version 1)
Quarter: 2025Q2

REPORT INFORMATION
  Report Type: Spontaneous
  Country: US (occurrence: US)
  Receive Date: 20250512
  Receipt Date: 20250512
  Transmission Date: 20250717
  Serious: No
  Sender: GALPHARM INTERNATIONAL
  Company Number: US-PERRIGO-24US010877

PATIENT
  Sex: Female

DRUGS (1)
  1. MICONAZOLE NITRATE [Suspect]
     Active Substance: MICONAZOLE NITRATE
     Indication: Product used for unknown indication
     Route: 067

REACTIONS (4)
  - Genital paraesthesia [Recovered/Resolved]
  - Underdose [Recovered/Resolved]
  - Vulvovaginal burning sensation [Recovered/Resolved]
  - Drug effect less than expected [Unknown]
